FAERS Safety Report 10467035 (Version 3)
Quarter: 2015Q1

REPORT INFORMATION
  Report Type: Spontaneous
  Country: US (occurrence: US)
  Receive Date: 20140922
  Receipt Date: 20150331
  Transmission Date: 20150720
  Serious: Yes (Hospitalization, Other)
  Sender: FDA-Public Use
  Company Number: US-MERCK-1409USA009893

PATIENT
  Sex: Female
  Weight: 91.61 kg

DRUGS (3)
  1. JANUMET [Suspect]
     Active Substance: METFORMIN HYDROCHLORIDE\SITAGLIPTIN PHOSPHATE
     Indication: TYPE 2 DIABETES MELLITUS
     Dosage: 500-1000MG QD
     Route: 048
     Dates: start: 20110412, end: 20120716
  2. JANUMET [Suspect]
     Active Substance: METFORMIN HYDROCHLORIDE\SITAGLIPTIN PHOSPHATE
     Dosage: 50-500MG QD
     Route: 048
     Dates: start: 20120716, end: 20121011
  3. JANUVIA [Suspect]
     Active Substance: SITAGLIPTIN PHOSPHATE
     Indication: TYPE 2 DIABETES MELLITUS
     Dosage: 100 MG, QD
     Route: 048
     Dates: start: 20100624, end: 20120716

REACTIONS (26)
  - Pancreatic neuroendocrine tumour [Unknown]
  - Hyperglycaemia [Recovered/Resolved]
  - Glaucoma [Unknown]
  - Hyperglycaemia [Unknown]
  - Tachycardia [Unknown]
  - Cystitis [Unknown]
  - Pancreatic duct dilatation [Unknown]
  - Benign spleen tumour [Unknown]
  - Myocardial infarction [Unknown]
  - Hypersensitivity [Unknown]
  - Pancreaticoduodenectomy [Unknown]
  - Splenectomy [Recovered/Resolved]
  - Mental status changes postoperative [Recovered/Resolved]
  - Cataract [Unknown]
  - Sinusitis [Unknown]
  - Hypotension [Unknown]
  - Hot flush [Unknown]
  - Localised intraabdominal fluid collection [Unknown]
  - Arthritis [Unknown]
  - Anastomotic stenosis [Unknown]
  - Malabsorption [Unknown]
  - Colon adenoma [Unknown]
  - Meningioma [Unknown]
  - Sleep apnoea syndrome [Unknown]
  - Osteoporosis [Unknown]
  - Diarrhoea [Unknown]

NARRATIVE: CASE EVENT DATE: 20110121
